FAERS Safety Report 8820074 (Version 3)
Quarter: 2013Q1

REPORT INFORMATION
  Report Type: Spontaneous
  Country: BR (occurrence: BR)
  Receive Date: 20121002
  Receipt Date: 20130325
  Transmission Date: 20140127
  Serious: Yes (Other)
  Sender: FDA-Public Use
  Company Number: PHHY2011BR099434

PATIENT
  Sex: Female

DRUGS (4)
  1. EXELON PATCH [Suspect]
     Indication: DEMENTIA ALZHEIMER^S TYPE
     Dosage: 9.5 MG (PATCH 10 CM2), DAILY
     Route: 062
     Dates: start: 201012
  2. ALOIS [Suspect]
     Indication: DEMENTIA ALZHEIMER^S TYPE
     Dosage: 1 DF, BID
     Route: 048
  3. PANTOPRAZOLE [Concomitant]
     Dosage: 1 DF, QD
  4. OMEPRAZOLE [Concomitant]
     Dosage: 1 DF, QD
     Route: 048

REACTIONS (14)
  - Lower limb fracture [Not Recovered/Not Resolved]
  - Fall [Unknown]
  - Urinary tract infection [Unknown]
  - Musculoskeletal stiffness [Not Recovered/Not Resolved]
  - Pain in extremity [Unknown]
  - Back pain [Unknown]
  - Fear of falling [Not Recovered/Not Resolved]
  - Abnormal behaviour [Unknown]
  - Hallucination [Unknown]
  - Agitation [Unknown]
  - Dementia Alzheimer^s type [Not Recovered/Not Resolved]
  - Memory impairment [Not Recovered/Not Resolved]
  - Headache [Unknown]
  - Dizziness [Not Recovered/Not Resolved]
